FAERS Safety Report 7944483-9 (Version None)
Quarter: 2011Q4

REPORT INFORMATION
  Report Type: 
  Country: None (occurrence: None)
  Receive Date: 20111129
  Receipt Date: 20111116
  Transmission Date: 20120403
  Serious: Yes (Hospitalization)
  Sender: FDA-Public Use
  Company Number: JP-RANBAXY-2011RR-50350

PATIENT
  Sex: Male

DRUGS (4)
  1. CARBOCISTEINE [Suspect]
     Indication: PHARYNGITIS
     Dosage: 50 MG, QD
     Route: 048
     Dates: start: 20110531, end: 20110531
  2. TRANEXAMIC ACID [Suspect]
     Indication: PHARYNGITIS
     Dosage: 500 MG, QD
     Route: 048
     Dates: start: 20110531, end: 20110531
  3. ACETAMINOPHEN [Suspect]
     Indication: PHARYNGITIS
     Dosage: 200 MG, QD
     Route: 048
     Dates: start: 20110531, end: 20110531
  4. LEVOFLOXACIN [Suspect]
     Indication: PHARYNGITIS
     Dosage: 500 MG, QD
     Route: 048
     Dates: start: 20110531, end: 20110531

REACTIONS (1)
  - ANAPHYLACTIC SHOCK [None]
